FAERS Safety Report 17091798 (Version 1)
Quarter: 2019Q4

REPORT INFORMATION
  Report Type: Spontaneous
  Country: LV (occurrence: LV)
  Receive Date: 20191129
  Receipt Date: 20191129
  Transmission Date: 20200122
  Serious: Yes (Other)
  Sender: FDA-Public Use
  Company Number: LV-TEVA-2019-LV-1143649

PATIENT
  Age: 47 Year
  Sex: Female

DRUGS (1)
  1. TERBINAFIN ACTAVIS 250 MG TABLETES [Suspect]
     Active Substance: TERBINAFINE HYDROCHLORIDE
     Indication: ONYCHOMYCOSIS
     Dosage: 250 MG
     Route: 048
     Dates: start: 20191018, end: 20191020

REACTIONS (2)
  - Urticaria [Unknown]
  - Lymphadenopathy [Unknown]

NARRATIVE: CASE EVENT DATE: 20191020
